FAERS Safety Report 6100805-5 (Version None)
Quarter: 2009Q1

REPORT INFORMATION
  Report Type: 
  Country: None (occurrence: None)
  Receive Date: 20090303
  Receipt Date: 19980130
  Transmission Date: 20090719
  Serious: No
  Sender: FDA-Public Use
  Company Number: US-ABBOTT-08P-163-0458625-00

PATIENT
  Age: 3 Year

DRUGS (2)
  1. VALPROIC ACID SYRUP [Suspect]
     Indication: DRUG USE FOR UNKNOWN INDICATION
  2. L-CARNITINE [Concomitant]
     Indication: DRUG USE FOR UNKNOWN INDICATION

REACTIONS (2)
  - BLOOD URIC ACID INCREASED [None]
  - URINE URIC ACID INCREASED [None]
